APPROVED DRUG PRODUCT: LIRAGLUTIDE
Active Ingredient: LIRAGLUTIDE
Strength: 18MG/3ML (6MG/ML)
Dosage Form/Route: SOLUTION;SUBCUTANEOUS
Application: A218115 | Product #001 | TE Code: AP1
Applicant: NANJING KING FRIEND BIOCHEMICAL PHARMACEUTICAL CO LTD
Approved: Apr 2, 2025 | RLD: No | RS: No | Type: RX